FAERS Safety Report 13935080 (Version 1)
Quarter: 2017Q3

REPORT INFORMATION
  Report Type: Spontaneous
  Country: US (occurrence: None)
  Receive Date: 20170901
  Receipt Date: 20170901
  Transmission Date: 20171127
  Serious: Yes (Hospitalization)
  Sender: FDA-Public Use
  Company Number: None

PATIENT
  Age: 49 Year
  Sex: Female
  Weight: 74.4 kg

DRUGS (3)
  1. CARBOPLATIN. [Suspect]
     Active Substance: CARBOPLATIN
     Indication: EMBOLISM
     Dates: end: 20170717
  2. TAXOL [Concomitant]
     Active Substance: PACLITAXEL
     Dates: end: 20170617
  3. METFORMIN HYDROCHLORIDE. [Suspect]
     Active Substance: METFORMIN HYDROCHLORIDE
     Dates: end: 20170806

REACTIONS (4)
  - Lymphadenopathy [None]
  - Deep vein thrombosis [None]
  - Peripheral swelling [None]
  - Nausea [None]

NARRATIVE: CASE EVENT DATE: 20170807
